FAERS Safety Report 9882455 (Version 1)
Quarter: 2014Q1

REPORT INFORMATION
  Report Type: Spontaneous
  Country: US (occurrence: US)
  Receive Date: 20140207
  Receipt Date: 20140207
  Transmission Date: 20141002
  Serious: Yes (Other)
  Sender: FDA-Public Use
  Company Number: US-PFIZER INC-2014034750

PATIENT
  Sex: Male

DRUGS (6)
  1. TIKOSYN [Suspect]
     Indication: ATRIAL FIBRILLATION
     Dosage: UNK
  2. DILTIAZEM HCL [Suspect]
  3. LASIX [Concomitant]
     Dosage: UNK
  4. VITAMIN D [Concomitant]
     Dosage: UNK
  5. PROSCAR [Concomitant]
     Dosage: UNK
  6. CO-ENZYME Q10 [Concomitant]
     Dosage: UNK

REACTIONS (3)
  - Atrial fibrillation [Unknown]
  - Transient ischaemic attack [Unknown]
  - Blood potassium decreased [Unknown]
